FAERS Safety Report 11870754 (Version 1)
Quarter: 2015Q4

REPORT INFORMATION
  Report Type: Spontaneous
  Country: US (occurrence: None)
  Receive Date: 20151223
  Receipt Date: 20151223
  Transmission Date: 20160305
  Serious: Yes (Other)
  Sender: FDA-Public Use
  Company Number: None

PATIENT
  Age: 20 Year
  Sex: Male
  Weight: 77.11 kg

DRUGS (5)
  1. JUICE PLUS [Concomitant]
     Active Substance: DIETARY SUPPLEMENT
  2. MONTELUKAST SODIUM. [Suspect]
     Active Substance: MONTELUKAST SODIUM
     Indication: MULTIPLE ALLERGIES
     Dates: start: 20151111, end: 20151216
  3. VYVANSE [Concomitant]
     Active Substance: LISDEXAMFETAMINE DIMESYLATE
  4. FISH OIL [Concomitant]
     Active Substance: FISH OIL
  5. LEXAPRO [Concomitant]
     Active Substance: ESCITALOPRAM OXALATE

REACTIONS (3)
  - Depression [None]
  - Condition aggravated [None]
  - Hypersensitivity [None]

NARRATIVE: CASE EVENT DATE: 20151222
